FAERS Safety Report 8476493-X (Version None)
Quarter: 2012Q2

REPORT INFORMATION
  Report Type: 
  Country: None (occurrence: None)
  Receive Date: 20120628
  Receipt Date: 20120615
  Transmission Date: 20120825
  Serious: Yes (Other)
  Sender: FDA-Public Use
  Company Number: NL-MYLANLABS-2012S1012276

PATIENT
  Sex: Male

DRUGS (5)
  1. AMLODIPINE [Concomitant]
     Indication: BLOOD PRESSURE MANAGEMENT
     Dosage: 0.2 MG/KG/D
     Route: 065
  2. SODIUM POLYSTYRENE SULFONATE [Concomitant]
     Indication: HYPERKALAEMIA
     Route: 048
  3. HYDROCHLOROTHIAZIDE [Concomitant]
     Indication: BLOOD PRESSURE MANAGEMENT
     Route: 065
  4. FUROSEMIDE [Suspect]
     Indication: BLOOD PRESSURE MANAGEMENT
     Dosage: 0.5 MG/KG/D
     Route: 065
  5. ATENOLOL [Concomitant]
     Indication: BLOOD PRESSURE MANAGEMENT
     Dosage: 0.5 MG/KG/D
     Route: 065

REACTIONS (2)
  - RENAL FAILURE CHRONIC [None]
  - DEHYDRATION [None]
